FAERS Safety Report 8086198-5 (Version None)
Quarter: 2012Q1

REPORT INFORMATION
  Report Type: 
  Country: None (occurrence: None)
  Receive Date: 20120128
  Receipt Date: 20110415
  Transmission Date: 20120608
  Serious: No
  Sender: FDA-Public Use
  Company Number: US-ABBOTT-11P-163-0719546-00

PATIENT
  Age: 30 Year
  Sex: Male

DRUGS (10)
  1. TYLENOL PM [Concomitant]
     Indication: INSOMNIA
  2. DESITIN [Concomitant]
     Indication: RASH
  3. HUMIRA [Suspect]
     Indication: CROHN'S DISEASE
     Dates: start: 20110101
  4. NYSTATIN [Concomitant]
     Indication: RASH
  5. VALIUM [Concomitant]
     Indication: MUSCLE RELAXANT THERAPY
     Dosage: 5MG/15ML
  6. ZANTAC [Concomitant]
     Indication: GASTROOESOPHAGEAL REFLUX DISEASE
  7. CALMOSEPTINE [Concomitant]
     Indication: RASH
  8. LORTAB [Concomitant]
     Indication: PAIN
     Dosage: 7.5/500/15MG AS NEEDED
  9. VALIUM [Concomitant]
     Indication: ABDOMINAL PAIN UPPER
  10. BISMUTH SUBSALICYLATE [Concomitant]
     Indication: NAUSEA

REACTIONS (1)
  - LACERATION [None]
